FAERS Safety Report 6808533-5 (Version None)
Quarter: 2010Q2

REPORT INFORMATION
  Report Type: 
  Country: None (occurrence: None)
  Receive Date: 20100629
  Receipt Date: 20090713
  Transmission Date: 20101027
  Serious: No
  Sender: FDA-Public Use
  Company Number: US-PFIZER INC-2009221440

PATIENT
  Sex: Male
  Weight: 90.7 kg

DRUGS (3)
  1. VIAGRA [Suspect]
     Dates: start: 20090101
  2. LISINOPRIL [Interacting]
  3. SIMVASTATIN [Interacting]

REACTIONS (4)
  - DRUG INTERACTION [None]
  - HEADACHE [None]
  - INTENTIONAL DRUG MISUSE [None]
  - RASH [None]
